FAERS Safety Report 16131301 (Version 1)
Quarter: 2019Q1

REPORT INFORMATION
  Report Type: Spontaneous
  Country: GB (occurrence: GB)
  Receive Date: 20190328
  Receipt Date: 20190328
  Transmission Date: 20190418
  Serious: Yes (Other)
  Sender: FDA-Public Use
  Company Number: PHHY2019GB069063

PATIENT
  Age: 83 Year

DRUGS (1)
  1. CLARITHROMYCIN. [Suspect]
     Active Substance: CLARITHROMYCIN
     Indication: CHRONIC OBSTRUCTIVE PULMONARY DISEASE
     Dosage: 500 MG, UNK
     Route: 065

REACTIONS (4)
  - Off label use [Unknown]
  - Dysphagia [Unknown]
  - Choking [Unknown]
  - Product size issue [Unknown]
